FAERS Safety Report 5603300-2 (Version None)
Quarter: 2008Q1

REPORT INFORMATION
  Report Type: 
  Country: None (occurrence: None)
  Receive Date: 20080123
  Receipt Date: 20080115
  Transmission Date: 20080703
  Serious: Yes (Hospitalization)
  Sender: FDA-Public Use
  Company Number: 2008SP001214

PATIENT
  Age: 62 Year
  Sex: Female

DRUGS (1)
  1. DESLORATADINE [Suspect]
     Indication: DRUG USE FOR UNKNOWN INDICATION
     Dosage: 5 MG; QD; PO
     Route: 048
     Dates: start: 20050101, end: 20061001

REACTIONS (3)
  - ANGINA UNSTABLE [None]
  - ASPHYXIA [None]
  - CHEST DISCOMFORT [None]
